FAERS Safety Report 8954425 (Version 2)
Quarter: 2013Q1

REPORT INFORMATION
  Report Type: Spontaneous
  Country: CA (occurrence: CA)
  Receive Date: 20121207
  Receipt Date: 20130207
  Transmission Date: 20140127
  Serious: Yes (Hospitalization)
  Sender: FDA-Public Use
  Company Number: CA-B.I. PHARMACEUTICALS,INC./RIDGEFIELD-2012-BI-01763BP

PATIENT
  Sex: Male

DRUGS (1)
  1. MIRAPEX [Suspect]
     Indication: PARKINSON^S DISEASE
     Route: 048

REACTIONS (4)
  - Psychotic disorder [Unknown]
  - Pathological gambling [Not Recovered/Not Resolved]
  - Hallucination, visual [Recovered/Resolved]
  - Hypersexuality [Not Recovered/Not Resolved]
